FAERS Safety Report 4690137-4 (Version None)
Quarter: 2005Q2

REPORT INFORMATION
  Report Type: 
  Country: None (occurrence: None)
  Receive Date: 20050613
  Receipt Date: 20050531
  Transmission Date: 20051028
  Serious: Yes (Death, Hospitalization)
  Sender: FDA-Public Use
  Company Number: TNZUK200500054

PATIENT
  Age: 89 Year
  Sex: Female

DRUGS (7)
  1. INNOHEP [Suspect]
     Indication: DEEP VEIN THROMBOSIS
     Dosage: 10500 IU (10500 IU, ONCE DAILY)
     Dates: start: 20041123, end: 20041124
  2. MAXITROL (DEXAMETHASONE W/NEOMYCIN, POLYMYXIN B) [Concomitant]
  3. ASPIRIN [Concomitant]
  4. BUMETANIDE [Concomitant]
  5. ENALAPRIL MALEATE [Concomitant]
  6. FLUOXETINE [Concomitant]
  7. GLICLAZIDE (GLICLAZIDE) [Concomitant]

REACTIONS (10)
  - BRONCHOPNEUMONIA [None]
  - COMPUTERISED TOMOGRAM ABNORMAL [None]
  - CONTUSION [None]
  - FLANK PAIN [None]
  - HAEMOGLOBIN DECREASED [None]
  - INTERNATIONAL NORMALISED RATIO DECREASED [None]
  - PURULENCE [None]
  - RENAL FAILURE [None]
  - RETROPERITONEAL HAEMORRHAGE [None]
  - WOUND [None]
